FAERS Safety Report 12203280 (Version 1)
Quarter: 2016Q1

REPORT INFORMATION
  Report Type: Spontaneous
  Country: US (occurrence: None)
  Receive Date: 20160321
  Receipt Date: 20160321
  Transmission Date: 20160526
  Serious: Yes (Life-Threatening, Hospitalization)
  Sender: FDA-Public Use
  Company Number: None

PATIENT
  Age: 31 Year
  Sex: Male

DRUGS (1)
  1. ISOVUE [Suspect]
     Active Substance: IOPAMIDOL

REACTIONS (8)
  - Pallor [None]
  - Unresponsive to stimuli [None]
  - Necrosis [None]
  - Anaphylactic reaction [None]
  - Hyperhidrosis [None]
  - Neck mass [None]
  - Urinary incontinence [None]
  - Erythema [None]

NARRATIVE: CASE EVENT DATE: 20150415
